FAERS Safety Report 5431665-3 (Version None)
Quarter: 2007Q3

REPORT INFORMATION
  Report Type: 
  Country: None (occurrence: None)
  Receive Date: 20070830
  Receipt Date: 20070822
  Transmission Date: 20080115
  Serious: Yes (Life-Threatening, Hospitalization)
  Sender: FDA-Public Use
  Company Number: HQWYE756422AUG07

PATIENT
  Age: 76 Year
  Sex: Female

DRUGS (8)
  1. INIPOMP [Suspect]
     Indication: GASTROOESOPHAGEAL REFLUX DISEASE
     Route: 048
     Dates: start: 20070401, end: 20070711
  2. ESCITALOPRAM OXALATE [Suspect]
     Indication: DEPRESSION
     Dosage: 1/DAY 1 DF
     Route: 048
     Dates: start: 20070612, end: 20070711
  3. SIMVASTATIN [Concomitant]
     Dosage: 1/DAY 40 MG
     Route: 048
  4. INDAPAMIDE [Concomitant]
     Dosage: 1/DAY 1.5 MG
     Route: 048
  5. TRIATEC [Concomitant]
     Dosage: 1/DAY 5 MG
     Route: 048
  6. HYPERIUM [Concomitant]
     Dosage: 1/DAY 1 DF
     Route: 048
  7. BACTRIM DS [Suspect]
     Indication: URINARY TRACT INFECTION
     Dosage: DF
     Route: 048
     Dates: start: 20070704, end: 20070711
  8. OROKEN [Suspect]
     Indication: URINARY TRACT DISORDER
     Dosage: 1/DAY 1 DF
     Route: 048
     Dates: start: 20070709, end: 20070711

REACTIONS (8)
  - ALANINE AMINOTRANSFERASE INCREASED [None]
  - ASPARTATE AMINOTRANSFERASE INCREASED [None]
  - BLOOD ALKALINE PHOSPHATASE INCREASED [None]
  - BLOOD SODIUM DECREASED [None]
  - C-REACTIVE PROTEIN INCREASED [None]
  - GAMMA-GLUTAMYLTRANSFERASE INCREASED [None]
  - SERUM FERRITIN INCREASED [None]
  - TOXIC EPIDERMAL NECROLYSIS [None]
